FAERS Safety Report 5423472-2 (Version None)
Quarter: 2007Q3

REPORT INFORMATION
  Report Type: 
  Country: None (occurrence: None)
  Receive Date: 20070823
  Receipt Date: 20070821
  Transmission Date: 20080115
  Serious: Yes (Hospitalization, Other)
  Sender: FDA-Public Use
  Company Number: FR-SP-2006-00027

PATIENT
  Age: 74 Year
  Sex: Male

DRUGS (3)
  1. IMMUCYST [Suspect]
     Indication: BLADDER CANCER
     Route: 043
     Dates: start: 20050927
  2. IMMUCYST [Suspect]
     Route: 043
     Dates: start: 20050927
  3. IMMUCYST [Suspect]
     Route: 043
     Dates: start: 20050927

REACTIONS (4)
  - ASTHMA [None]
  - BOVINE TUBERCULOSIS [None]
  - GRANULOMATOUS LIVER DISEASE [None]
  - SEPTIC SHOCK [None]
